FAERS Safety Report 7122836-9 (Version None)
Quarter: 2010Q4

REPORT INFORMATION
  Report Type: 
  Country: None (occurrence: None)
  Receive Date: 20101124
  Receipt Date: 20101111
  Transmission Date: 20110411
  Serious: Yes (Hospitalization)
  Sender: FDA-Public Use
  Company Number: PHHY2010NL76849

PATIENT
  Sex: Male

DRUGS (3)
  1. ZOMETA [Suspect]
     Dosage: 4 MG/5 ML
     Dates: start: 20080901
  2. ZOMETA [Suspect]
     Dosage: 4 MG/5 ML
     Dates: start: 20101013
  3. ZOMETA [Suspect]
     Dosage: 4 MG/5 ML
     Dates: start: 20101111

REACTIONS (2)
  - ANAEMIA [None]
  - PNEUMONIA [None]
